FAERS Safety Report 17727046 (Version 2)
Quarter: 2020Q2

REPORT INFORMATION
  Report Type: Spontaneous
  Country: US (occurrence: US)
  Receive Date: 20200430
  Receipt Date: 20200505
  Transmission Date: 20200714
  Serious: No
  Sender: FDA-Public Use
  Company Number: US-009507513-2004USA009008

PATIENT
  Age: 22 Year
  Sex: Female
  Weight: 75.74 kg

DRUGS (1)
  1. NEXPLANON [Suspect]
     Active Substance: ETONOGESTREL
     Indication: CONTRACEPTION
     Dosage: 1 ROD EVERY 3 YEARS
     Route: 059
     Dates: start: 20200427

REACTIONS (6)
  - Implant site mass [Not Recovered/Not Resolved]
  - Implant site irritation [Unknown]
  - Implant site pain [Not Recovered/Not Resolved]
  - Increased tendency to bruise [Unknown]
  - Implant site erythema [Not Recovered/Not Resolved]
  - Implant site warmth [Not Recovered/Not Resolved]

NARRATIVE: CASE EVENT DATE: 202004
